FAERS Safety Report 8933675 (Version 2)
Quarter: 2012Q4

REPORT INFORMATION
  Report Type: 
  Country: US (occurrence: US)
  Receive Date: 20121129
  Receipt Date: 20121218
  Transmission Date: 20130627
  Serious: Yes (Death)
  Sender: FDA-Public Use
  Company Number: PHEH2012US023290

PATIENT
  Age: 91 Year
  Sex: Female

DRUGS (2)
  1. DIOVAN [Suspect]
     Dosage: once daily
  2. LORTAB [Concomitant]

REACTIONS (1)
  - Death [Fatal]
